FAERS Safety Report 14774199 (Version 2)
Quarter: 2018Q2

REPORT INFORMATION
  Report Type: Spontaneous
  Country: US (occurrence: US)
  Receive Date: 20180418
  Receipt Date: 20180524
  Transmission Date: 20180711
  Serious: Yes (Hospitalization, Other)
  Sender: FDA-Public Use
  Company Number: US-BECTON DICKINSON-2018BDN00091

PATIENT
  Age: 15 Year
  Sex: Female
  Weight: 95.24 kg

DRUGS (2)
  1. CHLORAPREP [Suspect]
     Active Substance: CHLORHEXIDINE GLUCONATE\ISOPROPYL ALCOHOL
     Indication: INFECTION PROPHYLAXIS
     Dosage: 26 ML, UNK
     Route: 061
     Dates: start: 20180316, end: 20180316
  2. CHLORAPREP [Suspect]
     Active Substance: CHLORHEXIDINE GLUCONATE\ISOPROPYL ALCOHOL
     Indication: INFECTION PROPHYLAXIS
     Dosage: UNK
     Route: 061
     Dates: start: 20170922, end: 20170922

REACTIONS (5)
  - Skin graft [Unknown]
  - Skin graft failure [Unknown]
  - Hypersensitivity [Not Recovered/Not Resolved]
  - Chemical burn of skin [Not Recovered/Not Resolved]
  - Blister [Recovered/Resolved]

NARRATIVE: CASE EVENT DATE: 20170922
